FAERS Safety Report 10091868 (Version 2)
Quarter: 2014Q2

REPORT INFORMATION
  Report Type: Spontaneous
  Country: US (occurrence: US)
  Receive Date: 20140421
  Receipt Date: 20140421
  Transmission Date: 20141212
  Serious: No
  Sender: FDA-Public Use
  Company Number: US-GILEAD-2012-0066804

PATIENT
  Age: 58 Year
  Sex: Female

DRUGS (1)
  1. LETAIRIS [Suspect]
     Indication: PULMONARY ARTERIAL HYPERTENSION
     Dosage: 5 MG, QD
     Dates: start: 20120516, end: 20130325

REACTIONS (4)
  - Hyperhidrosis [Recovered/Resolved]
  - Discomfort [Unknown]
  - Flushing [Not Recovered/Not Resolved]
  - Hot flush [Recovered/Resolved]
